FAERS Safety Report 7812124-7 (Version None)
Quarter: 2011Q4

REPORT INFORMATION
  Report Type: 
  Country: None (occurrence: None)
  Receive Date: 20111013
  Receipt Date: 20111012
  Transmission Date: 20120403
  Serious: Yes (Other)
  Sender: FDA-Public Use
  Company Number: US-AMGEN-USASP2011049443

PATIENT
  Sex: Male
  Weight: 87.71 kg

DRUGS (11)
  1. DIPHENOXYLATE [Concomitant]
  2. NPLATE [Suspect]
     Indication: IDIOPATHIC THROMBOCYTOPENIC PURPURA
     Dosage: 1 MUG/KG, UNK
     Dates: start: 20100511, end: 20110329
  3. MULTIVITAMIN                       /00097801/ [Concomitant]
  4. IMMUNOGLOBULINS [Concomitant]
     Indication: IDIOPATHIC THROMBOCYTOPENIC PURPURA
  5. IMURAN [Concomitant]
     Indication: IDIOPATHIC THROMBOCYTOPENIC PURPURA
  6. AZATHIOPRINE [Concomitant]
     Dosage: UNK
  7. RITUXIMAB [Concomitant]
     Indication: IDIOPATHIC THROMBOCYTOPENIC PURPURA
  8. DULOXETIME HYDROCHLORIDE [Concomitant]
  9. ALBUTEROL [Concomitant]
  10. BENAZEPRIL HYDROCHLORIDE [Concomitant]
  11. OXYCODONE HCL [Concomitant]

REACTIONS (5)
  - FIBROMYALGIA [None]
  - DEPRESSION [None]
  - NAUSEA [None]
  - HEADACHE [None]
  - DRUG INEFFECTIVE [None]
